FAERS Safety Report 10027550 (Version 1)
Quarter: 2014Q1

REPORT INFORMATION
  Report Type: Spontaneous
  Country: IT (occurrence: None)
  Receive Date: 20140318
  Receipt Date: 20140318
  Transmission Date: 20141002
  Serious: Yes (Other)
  Sender: FDA-Public Use
  Company Number: AUR-APL-2014-02654

PATIENT
  Age: 85 Year
  Sex: Female

DRUGS (12)
  1. BISOPROLOL [Suspect]
     Indication: ATRIAL FIBRILLATION
     Route: 048
     Dates: start: 20130101, end: 20140201
  2. FISIOTENS (MOXONIDINE) [Concomitant]
  3. LANSOX (LANSOPRAZOLE) [Concomitant]
  4. EUTIROX (LEVOTHYROTHYROXINE SODIUM) [Concomitant]
  5. ZANEDIP (LERCANIDIPINE HYDROCHLORIDE) [Concomitant]
  6. LONITEN (MINOXIDIL) [Concomitant]
  7. LASIX (FUROSEMIDE) [Concomitant]
  8. COUMADIN (COUMARIN) [Concomitant]
  9. TRITTICO (TRAZODONE HYDROCHLORIDE) [Concomitant]
  10. MANTADAN (AMANTADINE HYDROCHLORIDE) [Concomitant]
  11. JANUVIA (SITAGLIPTIN PHOSPHATE) [Concomitant]
  12. SODIUM BICARBONATE (SODIUM BICARBONATE) [Concomitant]

REACTIONS (7)
  - Bradycardia [None]
  - Oedema [None]
  - Ascites [None]
  - Unevaluable event [None]
  - Renal failure acute [None]
  - Drug hypersensitivity [None]
  - Drug intolerance [None]
